FAERS Safety Report 4984854-6 (Version None)
Quarter: 2006Q2

REPORT INFORMATION
  Report Type: 
  Country: None (occurrence: None)
  Receive Date: 20060427
  Receipt Date: 20060228
  Transmission Date: 20061013
  Serious: Yes (Hospitalization)
  Sender: FDA-Public Use
  Company Number: US-ROCHE-438804

PATIENT
  Age: 45 Year
  Sex: Female

DRUGS (7)
  1. FUZEON [Suspect]
     Route: 065
     Dates: start: 20051015, end: 20060215
  2. FUZEON [Suspect]
     Route: 065
  3. EFAVIRENZ [Suspect]
     Dosage: AFTER LETHARGY ONSET ANTIRETROVIRAL THERAPY WAS INTERRUPTED IN ABOUT FEB 2006 AND THEN RESTARTED WI+
     Route: 065
     Dates: start: 20051015
  4. TIPRANAVIR [Concomitant]
     Dosage: AFTER THE ONSET OF LETHARGY, CONFUSION AND SEIZURES, ANTIRETROVIRAL THERAPY WAS INTERRUPTED IN APPR+
     Dates: start: 20051015
  5. TENOFOVIR [Concomitant]
     Dosage: AFTER THE ONSET OF LETHARGY, CONFUSION AND SEIZURES, ANTIRETROVIRAL THERAPY WAS INTERRUPTED IN APPR+
     Dates: start: 20051015
  6. EMTRICITABINE [Concomitant]
     Dosage: AFTER THE ONSET OF LETHARGY, CONFUSION AND SEIZURES, ANTIRETROVIRAL THERAPY WAS INTERRUPTED IN APPR+
     Dates: start: 20051015
  7. RITONAVIR [Concomitant]
     Dosage: AFTER THE ONSET OF LETHARGY, CONFUSION AND SEIZURES, ANTIRETROVIRAL THERAPY WAS INTERRUPTED IN APPR+
     Dates: start: 20051015

REACTIONS (5)
  - CONVULSION [None]
  - INJECTION SITE REACTION [None]
  - LETHARGY [None]
  - MALAISE [None]
  - WEIGHT DECREASED [None]
